FAERS Safety Report 16689828 (Version 1)
Quarter: 2019Q3

REPORT INFORMATION
  Report Type: Spontaneous
  Country: GB (occurrence: GB)
  Receive Date: 20190809
  Receipt Date: 20190809
  Transmission Date: 20191004
  Serious: Yes (Other)
  Sender: FDA-Public Use
  Company Number: GB-MYLANLABS-2019M1073758

PATIENT
  Age: 65 Year
  Sex: Male

DRUGS (1)
  1. IBUPROFEN. [Suspect]
     Active Substance: IBUPROFEN
     Indication: MUSCULOSKELETAL PAIN
     Dosage: 800 MILLIGRAM, QD (NOT TAKEN REGULARLY)
     Dates: start: 2017, end: 201812

REACTIONS (4)
  - Vision blurred [Not Recovered/Not Resolved]
  - Macular degeneration [Not Recovered/Not Resolved]
  - Hypertension [Not Recovered/Not Resolved]
  - Eye haemorrhage [Not Recovered/Not Resolved]
